FAERS Safety Report 12785393 (Version 2)
Quarter: 2016Q3

REPORT INFORMATION
  Report Type: Spontaneous
  Country: DE (occurrence: DE)
  Receive Date: 20160927
  Receipt Date: 20160928
  Transmission Date: 20161109
  Serious: Yes (Hospitalization, Disabling)
  Sender: FDA-Public Use
  Company Number: DE-TEVA-693771GER

PATIENT
  Sex: Male

DRUGS (7)
  1. DEKRISTOL 20000 I.E. [Concomitant]
  2. ATORVASTATIN [Suspect]
     Active Substance: ATORVASTATIN
     Indication: TYPE IIA HYPERLIPIDAEMIA
  3. PREDNISOLON 1MG [Concomitant]
     Dosage: 1 MILLIGRAM DAILY; 0-0-1
  4. ASS 100 [Concomitant]
     Active Substance: ASPIRIN
     Dosage: 100 MILLIGRAM DAILY; 1-0-0
  5. FOLIC ACID  5 [Concomitant]
  6. METHOTREXAT 10MG [Concomitant]
  7. VERAPAMIL 80 MG [Concomitant]
     Dosage: 240 MILLIGRAM DAILY;

REACTIONS (6)
  - Wound [Unknown]
  - Debridement [Unknown]
  - Tendon discomfort [Unknown]
  - Tendon rupture [Unknown]
  - Tendon pain [Unknown]
  - Impaired healing [Unknown]

NARRATIVE: CASE EVENT DATE: 201506
